FAERS Safety Report 7440624-0 (Version None)
Quarter: 2011Q2

REPORT INFORMATION
  Report Type: 
  Country: None (occurrence: None)
  Receive Date: 20110427
  Receipt Date: 20110419
  Transmission Date: 20111010
  Serious: Yes (Hospitalization)
  Sender: FDA-Public Use
  Company Number: B0715419A

PATIENT
  Age: 31 Year
  Sex: Male

DRUGS (1)
  1. PROPAFENONE [Suspect]
     Indication: ATRIAL FIBRILLATION
     Dosage: 600MG PER DAY
     Route: 048

REACTIONS (1)
  - BRUGADA SYNDROME [None]
